FAERS Safety Report 10607770 (Version 2)
Quarter: 2015Q1

REPORT INFORMATION
  Report Type: Report from Study
  Country: FR (occurrence: FR)
  Receive Date: 20141125
  Receipt Date: 20150205
  Transmission Date: 20150720
  Serious: Yes (Other)
  Sender: FDA-Public Use
  Company Number: FR-BAYER-2014-170718

PATIENT
  Age: 68 Year

DRUGS (1)
  1. REGORAFENIB [Suspect]
     Active Substance: REGORAFENIB
     Indication: COLORECTAL CANCER METASTATIC
     Dosage: 160 MG, UNK
     Dates: start: 20130506

REACTIONS (2)
  - Mucosal inflammation [Recovered/Resolved]
  - Epidermolysis bullosa [Recovered/Resolved]

NARRATIVE: CASE EVENT DATE: 20130523
